FAERS Safety Report 7150682-9 (Version None)
Quarter: 2010Q4

REPORT INFORMATION
  Report Type: 
  Country: None (occurrence: None)
  Receive Date: 20101210
  Receipt Date: 20101207
  Transmission Date: 20110411
  Serious: Yes (Death, Other)
  Sender: FDA-Public Use
  Company Number: US-JNJFOC-20101002065

PATIENT
  Sex: Female
  Weight: 45.36 kg

DRUGS (1)
  1. TRAMADOL HCL [Suspect]
     Indication: PAIN
     Route: 048

REACTIONS (12)
  - CEREBROVASCULAR ACCIDENT [None]
  - DRUG ADMINISTRATION ERROR [None]
  - DYSPHONIA [None]
  - DYSPNOEA [None]
  - EYE DISORDER [None]
  - GRIMACING [None]
  - HALLUCINATION [None]
  - HEMIPLEGIA [None]
  - HYPERSOMNIA [None]
  - LETHARGY [None]
  - MUSCLE TIGHTNESS [None]
  - SWOLLEN TONGUE [None]
